FAERS Safety Report 15596706 (Version 1)
Quarter: 2018Q4

REPORT INFORMATION
  Report Type: Spontaneous
  Country: US (occurrence: US)
  Receive Date: 20181108
  Receipt Date: 20181108
  Transmission Date: 20190205
  Serious: No
  Sender: FDA-Public Use
  Company Number: US-ASTRAZENECA-2018SF32487

PATIENT
  Age: 87 Year
  Sex: Female

DRUGS (2)
  1. PULMICORT FLEXHALER [Suspect]
     Active Substance: BUDESONIDE
     Dosage: 180.0UG UNKNOWN
     Route: 055
  2. ASMENEX [Concomitant]

REACTIONS (7)
  - Feeling abnormal [Unknown]
  - Wheezing [Unknown]
  - Product dose omission [Unknown]
  - Drug ineffective [Unknown]
  - Asthma [Unknown]
  - Intentional product misuse [Unknown]
  - Device issue [Unknown]
